FAERS Safety Report 20746782 (Version 2)
Quarter: 2022Q2

REPORT INFORMATION
  Report Type: Spontaneous
  Country: US (occurrence: US)
  Receive Date: 20220425
  Receipt Date: 20220602
  Transmission Date: 20220720
  Serious: No
  Sender: FDA-Public Use
  Company Number: US-PFIZER INC-202200590583

PATIENT
  Age: 77 Year
  Sex: Male
  Weight: 69.388 kg

DRUGS (1)
  1. PAXLOVID [Suspect]
     Active Substance: NIRMATRELVIR\RITONAVIR
     Indication: COVID-19 treatment
     Dosage: 2 DF, 2X/DAY
     Dates: start: 20220411, end: 20220413

REACTIONS (4)
  - Diplopia [Recovered/Resolved]
  - Nervous system disorder [Unknown]
  - Off label use [Unknown]
  - Product use issue [Unknown]
